FAERS Safety Report 9531222 (Version 2)
Quarter: 2013Q3

REPORT INFORMATION
  Report Type: Spontaneous
  Country: FR (occurrence: FR)
  Receive Date: 20130918
  Receipt Date: 20130923
  Transmission Date: 20140515
  Serious: Yes (Hospitalization)
  Sender: FDA-Public Use
  Company Number: FR-ROCHE-1275759

PATIENT
  Age: 68 Year
  Sex: Male

DRUGS (4)
  1. ROCEPHINE [Suspect]
     Indication: PLEURAL EFFUSION
     Route: 058
     Dates: start: 20130620, end: 20130622
  2. CORTANCYL [Suspect]
     Indication: PLEURAL EFFUSION
     Route: 048
     Dates: end: 201306
  3. DIFFU K [Concomitant]
     Route: 048
  4. RASILEZ [Concomitant]
     Route: 048

REACTIONS (2)
  - Toxic skin eruption [Unknown]
  - Renal failure acute [Unknown]
